FAERS Safety Report 26131179 (Version 1)
Quarter: 2025Q4

REPORT INFORMATION
  Report Type: Spontaneous
  Country: EU (occurrence: EU)
  Receive Date: 20251208
  Receipt Date: 20251208
  Transmission Date: 20260118
  Serious: Yes (Hospitalization)
  Sender: SANDOZ
  Company Number: EU-SANDOZ-SDZ2025DE092384

PATIENT
  Sex: Female

DRUGS (5)
  1. CELECOXIB [Suspect]
     Active Substance: CELECOXIB
     Indication: Product used for unknown indication
     Dosage: 200 MG
     Route: 065
     Dates: start: 20230601
  2. CELECOXIB [Suspect]
     Active Substance: CELECOXIB
     Dosage: 200 MG
     Route: 065
     Dates: start: 20240930, end: 20241215
  3. COSENTYX [Suspect]
     Active Substance: SECUKINUMAB
     Indication: Product used for unknown indication
     Dosage: 150 MG
     Route: 065
     Dates: start: 20240927
  4. COSENTYX [Suspect]
     Active Substance: SECUKINUMAB
     Dosage: 300 MG
     Route: 065
     Dates: start: 20240927
  5. METHOTREXATE [Suspect]
     Active Substance: METHOTREXATE
     Indication: Product used for unknown indication
     Dosage: 15 MG
     Route: 065
     Dates: start: 20240801

REACTIONS (1)
  - Goitre [Unknown]

NARRATIVE: CASE EVENT DATE: 20250204
